FAERS Safety Report 10283353 (Version 1)
Quarter: 2014Q3

REPORT INFORMATION
  Report Type: Spontaneous
  Country: US (occurrence: US)
  Receive Date: 20140708
  Receipt Date: 20140708
  Transmission Date: 20150326
  Serious: No
  Sender: FDA-Public Use
  Company Number: US-BAYER-2014-100454

PATIENT
  Age: 35 Year
  Sex: Female

DRUGS (1)
  1. MIRENA [Suspect]
     Active Substance: LEVONORGESTREL
     Indication: CONTRACEPTION
     Dosage: 20 MCG/24HR, CONT
     Route: 015
     Dates: start: 201108

REACTIONS (4)
  - Amenorrhoea [Not Recovered/Not Resolved]
  - Abdominal pain lower [None]
  - Acne [None]
  - Breast tenderness [None]

NARRATIVE: CASE EVENT DATE: 201108
